FAERS Safety Report 14435856 (Version 1)
Quarter: 2018Q1

REPORT INFORMATION
  Report Type: Spontaneous
  Country: US (occurrence: US)
  Receive Date: 20180124
  Receipt Date: 20180124
  Transmission Date: 20180509
  Serious: Yes (Other)
  Sender: FDA-Public Use
  Company Number: None

PATIENT
  Age: 10 Year
  Sex: Male
  Weight: 23.85 kg

DRUGS (1)
  1. MIRALAX [Suspect]
     Active Substance: POLYETHYLENE GLYCOL 3350
     Indication: CONSTIPATION
     Route: 048
     Dates: start: 20120104, end: 20160107

REACTIONS (5)
  - Anger [None]
  - Depression [None]
  - Abnormal behaviour [None]
  - Aggression [None]
  - Therapy cessation [None]

NARRATIVE: CASE EVENT DATE: 20150408
